FAERS Safety Report 18163919 (Version 1)
Quarter: 2020Q3

REPORT INFORMATION
  Report Type: Spontaneous
  Country: US (occurrence: US)
  Receive Date: 20200818
  Receipt Date: 20200818
  Transmission Date: 20201103
  Serious: Yes (Hospitalization)
  Sender: FDA-Public Use
  Company Number: US-OTSUKA-2019_019351

PATIENT
  Age: 56 Year
  Sex: Male

DRUGS (1)
  1. ARIPIPRAZOLE. [Suspect]
     Active Substance: ARIPIPRAZOLE
     Indication: SCHIZOPHRENIA
     Dosage: UNK
     Route: 065

REACTIONS (8)
  - Imprisonment [Unknown]
  - Psychotic symptom [Recovering/Resolving]
  - Cognitive disorder [Recovering/Resolving]
  - Psychotic disorder [Unknown]
  - Hallucination, auditory [Recovering/Resolving]
  - Inadequate housing [Unknown]
  - Alcohol use disorder [Recovering/Resolving]
  - Loss of employment [Unknown]
